FAERS Safety Report 5151216-0 (Version None)
Quarter: 2006Q4

REPORT INFORMATION
  Report Type: 
  Country: None (occurrence: None)
  Receive Date: 20061113
  Receipt Date: 20061113
  Transmission Date: 20070319
  Serious: Yes (Life-Threatening)
  Sender: FDA-Public Use
  Company Number: None

PATIENT
  Age: 68 Year
  Sex: Male
  Weight: 85.2762 kg

DRUGS (2)
  1. THYROID TAB [Suspect]
     Indication: THYROIDECTOMY
     Dosage: 1 PER DAY  ONCE DAY   MAINT MED
     Dates: start: 19780501
  2. THYROID TAB [Suspect]
     Indication: THYROIDECTOMY
     Dosage: 1 PER DAY  MAINT MED
     Dates: start: 19780501

REACTIONS (7)
  - BLOOD PRESSURE INCREASED [None]
  - DRUG HYPERSENSITIVITY [None]
  - HEART RATE IRREGULAR [None]
  - PHARMACEUTICAL PRODUCT COMPLAINT [None]
  - SALIVARY HYPERSECRETION [None]
  - STOMATITIS [None]
  - WEIGHT ABNORMAL [None]
